FAERS Safety Report 6991793-8 (Version None)
Quarter: 2010Q3

REPORT INFORMATION
  Report Type: 
  Country: None (occurrence: None)
  Receive Date: 20100917
  Receipt Date: 20100908
  Transmission Date: 20110219
  Serious: Yes (Death)
  Sender: FDA-Public Use
  Company Number: US-PFIZER INC-2009303974

PATIENT
  Sex: Male
  Weight: 108 kg

DRUGS (9)
  1. CHANTIX [Suspect]
     Indication: TOBACCO ABUSE
     Dosage: STARTER PACK, 2X/DAY
     Route: 048
     Dates: start: 20091006, end: 20091112
  2. CHANTIX [Suspect]
     Indication: CHRONIC OBSTRUCTIVE PULMONARY DISEASE
  3. NORVASC [Concomitant]
  4. BENICAR [Concomitant]
  5. PRILOSEC [Concomitant]
     Dosage: 20 MG, DAILY
  6. SPIRIVA [Concomitant]
     Dosage: 1 CAPSULE INHALED DAILY
     Dates: start: 20091006, end: 20091112
  7. MULTI-VITAMINS [Concomitant]
  8. ACETYLSALICYLIC ACID [Concomitant]
     Dosage: 81 MG, DAILY
  9. ALBUTEROL [Concomitant]
     Dosage: 2 PUFFS Q 6 HRS
     Dates: start: 20091006, end: 20091112

REACTIONS (1)
  - COMPLETED SUICIDE [None]
